FAERS Safety Report 5804299-6 (Version None)
Quarter: 2008Q3

REPORT INFORMATION
  Report Type: 
  Country: None (occurrence: None)
  Receive Date: 20080709
  Receipt Date: 20080624
  Transmission Date: 20090109
  Serious: Yes (Other)
  Sender: FDA-Public Use
  Company Number: FR-ASTRAZENECA-2008CG00993

PATIENT
  Age: 28637 Day
  Sex: Female

DRUGS (8)
  1. NEXIUM [Suspect]
     Indication: HELICOBACTER INFECTION
     Route: 048
     Dates: start: 20080604, end: 20080610
  2. NEXIUM [Suspect]
     Route: 048
     Dates: start: 20080612, end: 20080613
  3. COVERSYL [Concomitant]
     Indication: HYPERTENSION
     Dates: end: 20080612
  4. COVERSYL [Concomitant]
     Dates: start: 20080615
  5. LASIX [Concomitant]
     Indication: HYPERTENSION
     Dates: end: 20080612
  6. LASIX [Concomitant]
     Dates: start: 20080615
  7. CLAMOXYL [Concomitant]
     Indication: HELICOBACTER INFECTION
     Dates: start: 20080604, end: 20080618
  8. CLARITHROMYCIN [Concomitant]
     Indication: HELICOBACTER INFECTION
     Dates: start: 20080604, end: 20080618

REACTIONS (1)
  - RENAL FAILURE ACUTE [None]
